FAERS Safety Report 6829613-4 (Version None)
Quarter: 2010Q3

REPORT INFORMATION
  Report Type: 
  Country: None (occurrence: None)
  Receive Date: 20100709
  Receipt Date: 20070414
  Transmission Date: 20110219
  Serious: No
  Sender: FDA-Public Use
  Company Number: US-PFIZER INC-2007010657

PATIENT
  Sex: Female
  Weight: 113.4 kg

DRUGS (4)
  1. VARENICLINE [Suspect]
     Indication: SMOKING CESSATION THERAPY
     Dates: start: 20070128
  2. LEXAPRO [Concomitant]
  3. MICARDIS HCT [Concomitant]
     Indication: HYPERTENSION
  4. XANAX [Concomitant]

REACTIONS (4)
  - NAUSEA [None]
  - RETCHING [None]
  - THERAPEUTIC RESPONSE DECREASED [None]
  - THROAT IRRITATION [None]
